FAERS Safety Report 18366334 (Version 62)
Quarter: 2024Q1

REPORT INFORMATION
  Report Type: Report from Study
  Country: CA (occurrence: CA)
  Receive Date: 20201009
  Receipt Date: 20240326
  Transmission Date: 20240410
  Serious: Yes (Hospitalization, Disabling, Other)
  Sender: FDA-Public Use
  Company Number: CA-KOREA IPSEN PHARMA-2020-18767

PATIENT
  Age: 42 Year
  Sex: Male

DRUGS (3)
  1. LANREOTIDE ACETATE [Suspect]
     Active Substance: LANREOTIDE ACETATE
     Indication: Gastroenteropancreatic neuroendocrine tumour disease
     Dosage: 120 MG EVERY 4 WEEKS
     Route: 058
     Dates: start: 20200906, end: 202102
  2. LANREOTIDE ACETATE [Suspect]
     Active Substance: LANREOTIDE ACETATE
     Dosage: 120 MG ONCE EVERY 2 WEEKS
     Route: 058
     Dates: start: 20210304
  3. CLONAZEPAM [Concomitant]
     Active Substance: CLONAZEPAM

REACTIONS (70)
  - Fatigue [Recovered/Resolved]
  - Headache [Recovered/Resolved]
  - Fatigue [Recovered/Resolved]
  - Hypermetropia [Recovered/Resolved]
  - Myopia [Not Recovered/Not Resolved]
  - Visual impairment [Recovered/Resolved]
  - Visual impairment [Recovered/Resolved with Sequelae]
  - Visual impairment [Recovered/Resolved with Sequelae]
  - Anal fissure [Not Recovered/Not Resolved]
  - Mouth haemorrhage [Recovered/Resolved]
  - Penile haemorrhage [Recovered/Resolved]
  - Rectal haemorrhage [Recovered/Resolved]
  - Malaise [Recovered/Resolved]
  - Haematochezia [Not Recovered/Not Resolved]
  - Rectal haemorrhage [Not Recovered/Not Resolved]
  - Hyperhidrosis [Recovered/Resolved]
  - Loss of consciousness [Unknown]
  - Dyspnoea [Recovered/Resolved]
  - Disease progression [Not Recovered/Not Resolved]
  - Alcoholism [Unknown]
  - Fall [Unknown]
  - Loss of consciousness [Recovered/Resolved]
  - Haemorrhoids [Not Recovered/Not Resolved]
  - Hospitalisation [Unknown]
  - Rib fracture [Unknown]
  - Road traffic accident [Unknown]
  - Anxiety [Unknown]
  - Fatigue [Recovered/Resolved]
  - Off label use [Unknown]
  - Off label use [Unknown]
  - Tachycardia [Recovered/Resolved]
  - Disorganised speech [Unknown]
  - Blepharospasm [Unknown]
  - Slow speech [Unknown]
  - Fatigue [Recovered/Resolved]
  - Asthenia [Not Recovered/Not Resolved]
  - Inappropriate schedule of product administration [Unknown]
  - Hypertension [Not Recovered/Not Resolved]
  - Diarrhoea [Not Recovered/Not Resolved]
  - Faeces pale [Recovering/Resolving]
  - Hypotension [Not Recovered/Not Resolved]
  - Fatigue [Recovered/Resolved]
  - Fatigue [Recovered/Resolved]
  - Off label use [Unknown]
  - Nausea [Recovered/Resolved]
  - Vomiting [Recovered/Resolved]
  - Nausea [Not Recovered/Not Resolved]
  - Vomiting [Not Recovered/Not Resolved]
  - Hypersomnia [Not Recovered/Not Resolved]
  - Fatigue [Recovered/Resolved]
  - Heart rate increased [Not Recovered/Not Resolved]
  - Nausea [Recovered/Resolved]
  - Fatigue [Recovered/Resolved]
  - Faeces discoloured [Not Recovered/Not Resolved]
  - Fatigue [Not Recovered/Not Resolved]
  - Hypersomnia [Not Recovered/Not Resolved]
  - Amnesia [Not Recovered/Not Resolved]
  - Fatigue [Not Recovered/Not Resolved]
  - Hypotension [Not Recovered/Not Resolved]
  - Urinary incontinence [Not Recovered/Not Resolved]
  - Anaemia [Unknown]
  - Emotional disorder [Unknown]
  - Personality disorder [Unknown]
  - General physical health deterioration [Unknown]
  - Eating disorder [Not Recovered/Not Resolved]
  - Hypersomnia [Unknown]
  - Blood urine present [Not Recovered/Not Resolved]
  - Pain [Recovering/Resolving]
  - Feeling abnormal [Unknown]
  - Off label use [Unknown]

NARRATIVE: CASE EVENT DATE: 20200101
